FAERS Safety Report 4849339-6 (Version None)
Quarter: 2005Q4

REPORT INFORMATION
  Report Type: 
  Country: None (occurrence: None)
  Receive Date: 20051209
  Receipt Date: 20051205
  Transmission Date: 20060501
  Serious: Yes (Other)
  Sender: FDA-Public Use
  Company Number: US-GILEAD-2005-0008998

PATIENT
  Age: 28 Year
  Sex: Female

DRUGS (1)
  1. VISTIDE [Suspect]
     Indication: RESPIRATORY PAPILLOMA
     Route: 026
     Dates: start: 20001218, end: 20030319

REACTIONS (2)
  - LARYNGEAL DYSPLASIA [None]
  - RESPIRATORY PAPILLOMA [None]
